FAERS Safety Report 9486634 (Version 1)
Quarter: 2013Q3

REPORT INFORMATION
  Report Type: Spontaneous
  Country: US (occurrence: US)
  Receive Date: 20130829
  Receipt Date: 20130829
  Transmission Date: 20140515
  Serious: Yes (Hospitalization, Other)
  Sender: FDA-Public Use
  Company Number: US-BAYER-2013-102745

PATIENT
  Age: 52 Year
  Sex: Female

DRUGS (5)
  1. ALEVE CAPLET [Suspect]
     Indication: PAIN IN EXTREMITY
     Dosage: UNK UNK, BID
  2. ALEVE CAPLET [Suspect]
     Indication: PAIN IN EXTREMITY
  3. HUMIRA [Suspect]
     Indication: CROHN^S DISEASE
     Dosage: 40 MG, 1 IN 2 WEEKS
     Dates: start: 20110511
  4. AMITRIPTYLINE [Concomitant]
  5. PREVACID [Concomitant]

REACTIONS (13)
  - Diverticulitis [None]
  - Bone loss [None]
  - Nausea [None]
  - Abdominal pain [None]
  - Crohn^s disease [None]
  - Nausea [None]
  - Flatulence [None]
  - Abdominal pain [None]
  - Abdominal distension [None]
  - Diarrhoea [None]
  - Malaise [None]
  - Blood calcium abnormal [None]
  - Vitamin D abnormal [None]
